FAERS Safety Report 4830451-2 (Version None)
Quarter: 2005Q4

REPORT INFORMATION
  Report Type: 
  Country: None (occurrence: None)
  Receive Date: 20051114
  Receipt Date: 20051101
  Transmission Date: 20060501
  Serious: Yes (Hospitalization)
  Sender: FDA-Public Use
  Company Number: 2005BI017641

PATIENT
  Sex: Female

DRUGS (2)
  1. AVONEX [Suspect]
     Indication: MULTIPLE SCLEROSIS
     Dosage: 30 UG; IM
     Route: 030
     Dates: start: 19970101
  2. CHOLESTEROL MEDICATION [Concomitant]

REACTIONS (3)
  - EMBOLISM [None]
  - TRANSIENT ISCHAEMIC ATTACK [None]
  - TREMOR [None]
